FAERS Safety Report 25968100 (Version 1)
Quarter: 2025Q4

REPORT INFORMATION
  Report Type: Spontaneous
  Country: GB (occurrence: None)
  Receive Date: 20251028
  Receipt Date: 20251028
  Transmission Date: 20260118
  Serious: Yes (Other)
  Sender: UCB
  Company Number: None

PATIENT

DRUGS (1)
  1. BIMEKIZUMAB [Suspect]
     Active Substance: BIMEKIZUMAB
     Indication: Erythrodermic psoriasis
     Dosage: 320 MILLIGRAM

REACTIONS (3)
  - Cold urticaria [Recovered/Resolved]
  - Mechanical urticaria [Recovered/Resolved]
  - Product use in unapproved indication [Unknown]
